FAERS Safety Report 8178113-0 (Version None)
Quarter: 2012Q1

REPORT INFORMATION
  Report Type: 
  Country: None (occurrence: None)
  Receive Date: 20120301
  Receipt Date: 20120214
  Transmission Date: 20120608
  Serious: Yes (Other)
  Sender: FDA-Public Use
  Company Number: CHPA2012US003208

PATIENT
  Sex: Female

DRUGS (1)
  1. GAS-X [Suspect]
     Dosage: 2 DF, TWICE
     Route: 048

REACTIONS (4)
  - BACK PAIN [None]
  - CONDITION AGGRAVATED [None]
  - LOSS OF CONSCIOUSNESS [None]
  - ABDOMINAL DISCOMFORT [None]
